FAERS Safety Report 10141531 (Version 1)
Quarter: 2014Q2

REPORT INFORMATION
  Report Type: Spontaneous
  Country: US (occurrence: US)
  Receive Date: 20140429
  Receipt Date: 20140429
  Transmission Date: 20141212
  Serious: Yes (Hospitalization)
  Sender: FDA-Public Use
  Company Number: US-GLAXOSMITHKLINE-A1070618A

PATIENT
  Age: 22 Year
  Sex: Female

DRUGS (2)
  1. COREG CR [Suspect]
     Indication: HYPERTENSION
     Dosage: 20MG PER DAY
     Route: 048
  2. METFORMIN [Concomitant]

REACTIONS (3)
  - Ovarian neoplasm [Unknown]
  - Ovarian operation [Unknown]
  - Ovarian cyst [Unknown]
